FAERS Safety Report 9563159 (Version 1)
Quarter: 2013Q3

REPORT INFORMATION
  Report Type: Spontaneous
  Country: US (occurrence: US)
  Receive Date: 20130927
  Receipt Date: 20130927
  Transmission Date: 20140515
  Serious: No
  Sender: FDA-Public Use
  Company Number: US-BRISTOL-MYERS SQUIBB COMPANY-18701136

PATIENT
  Age: 64 Year
  Sex: Female
  Weight: 87.53 kg

DRUGS (1)
  1. ONGLYZA TABS 5 MG [Suspect]
     Indication: TYPE 2 DIABETES MELLITUS
     Dosage: LAST DOSE ON 8-MAR-2013.?TABS
     Dates: start: 20130208

REACTIONS (1)
  - Urinary tract infection [Unknown]
